FAERS Safety Report 14149796 (Version 1)
Quarter: 2017Q4

REPORT INFORMATION
  Report Type: Spontaneous
  Country: JP (occurrence: US)
  Receive Date: 20171101
  Receipt Date: 20171101
  Transmission Date: 20180321
  Serious: Yes (Other)
  Sender: FDA-Public Use
  Company Number: US-ASTRAZENECA-2017SF08895

PATIENT
  Sex: Female
  Weight: 52 kg

DRUGS (10)
  1. EFIENT [Concomitant]
     Active Substance: PRASUGREL HYDROCHLORIDE
     Route: 048
     Dates: start: 20170722
  2. CARVEDILOL. [Suspect]
     Active Substance: CARVEDILOL
     Indication: CARDIAC FAILURE
     Dosage: 1.25MG UNKNOWN
     Route: 048
     Dates: start: 20170731, end: 20170801
  3. CEFCAPENE [Suspect]
     Active Substance: CEFCAPENE
     Indication: INFECTION
     Route: 048
     Dates: start: 20170731, end: 20170802
  4. NEXIUM [Suspect]
     Active Substance: ESOMEPRAZOLE MAGNESIUM
     Indication: PEPTIC ULCER
     Route: 048
     Dates: start: 20170723, end: 20170806
  5. ENALAPRIL MALEATE. [Suspect]
     Active Substance: ENALAPRIL MALEATE
     Indication: CARDIAC FAILURE
     Route: 048
     Dates: start: 20170725, end: 20170806
  6. BAYASPIRIN [Concomitant]
     Active Substance: ASPIRIN
     Route: 065
     Dates: start: 20170722
  7. ENALAPRIL MALEATE. [Suspect]
     Active Substance: ENALAPRIL MALEATE
     Indication: CARDIAC FAILURE
     Route: 048
     Dates: start: 20170722, end: 20170724
  8. CRESTOR [Suspect]
     Active Substance: ROSUVASTATIN CALCIUM
     Indication: DYSLIPIDAEMIA
     Route: 048
     Dates: start: 20170724
  9. CARVEDILOL. [Suspect]
     Active Substance: CARVEDILOL
     Indication: CARDIAC FAILURE
     Dosage: 2.5MG UNKNOWN
     Route: 048
     Dates: start: 20170802, end: 20170806
  10. NICORANDIL [Suspect]
     Active Substance: NICORANDIL
     Indication: MYOCARDIAL INFARCTION
     Route: 048
     Dates: start: 20170722, end: 20170806

REACTIONS (1)
  - Erythema multiforme [Unknown]

NARRATIVE: CASE EVENT DATE: 20170804
